FAERS Safety Report 6318944 (Version 11)
Quarter: 2015Q4

REPORT INFORMATION
  Report Type: Spontaneous
  Country: JP (occurrence: JP)
  Receive Date: 20070523
  Receipt Date: 20151030
  Transmission Date: 20160305
  Serious: Yes (Other)
  Sender: FDA-Public Use
  Company Number: JP-PFIZER INC-2007040189

PATIENT
  Age: 57 Year
  Sex: Female
  Weight: 48 kg

DRUGS (20)
  1. URSO [Concomitant]
     Active Substance: URSODIOL
     Dosage: 300 MG, DAILY
     Route: 048
  2. GASTER [Concomitant]
     Active Substance: FAMOTIDINE
     Route: 048
  3. LASIX [Concomitant]
     Active Substance: FUROSEMIDE
     Dosage: 80 MG, DAILY
     Route: 048
  4. PARIET [Concomitant]
     Active Substance: RABEPRAZOLE SODIUM
  5. THYRADIN S [Concomitant]
     Active Substance: LEVOTHYROXINE SODIUM
     Dosage: 25 MG, DAILY
     Route: 048
  6. LUPRAC [Concomitant]
     Active Substance: TORSEMIDE
     Dosage: 8 MG, DAILY
     Route: 048
  7. CINAL [Concomitant]
     Active Substance: ASCORBIC ACID\CALCIUM PANTOTHENATE
     Dosage: 1 G, DAILY
     Route: 048
  8. CELLCEPT [Concomitant]
     Active Substance: MYCOPHENOLATE MOFETIL\MYCOPHENOLATE MOFETIL HYDROCHLORIDE
     Dosage: 500 MG, DAILY
     Route: 048
  9. NEORAL [Concomitant]
     Active Substance: CYCLOSPORINE
     Dosage: 100 MG, DAILY
     Route: 048
  10. ALEVIATIN [Concomitant]
     Active Substance: PHENYTOIN SODIUM
  11. PREDONINE [Concomitant]
     Active Substance: PREDNISOLONE\PREDNISOLONE ACETATE\PREDNISOLONE SODIUM SUCCINATE
     Dosage: 2.5 MG, DAILY
     Route: 048
  12. ZYLORIC [Concomitant]
     Active Substance: ALLOPURINOL
  13. NORVASC [Suspect]
     Active Substance: AMLODIPINE BESYLATE
     Dosage: 10 MG, DAILY
     Route: 048
  14. SODIUM BICARBONATE. [Suspect]
     Active Substance: SODIUM BICARBONATE
     Dosage: 1 G, DAILY
     Route: 048
  15. ZYLORIC ^FAES^ [Suspect]
     Active Substance: ALLOPURINOL
     Dosage: 50 MG, DAILY
     Route: 048
  16. RENIVACE [Suspect]
     Active Substance: ENALAPRIL
     Dosage: 2.5 MG, DAILY
     Route: 048
  17. BIOFERMIN R [Concomitant]
     Active Substance: BACILLUS SUBTILIS\LACTOBACILLUS ACIDOPHILUS\STREPTOCOCCUS FAECAIS
     Dosage: 3 G, DAILY
     Route: 048
  18. SULPERAZONE [Suspect]
     Active Substance: CEFOPERAZONE SODIUM\SULBACTAM SODIUM
     Indication: INFECTION
     Route: 042
     Dates: start: 200507, end: 200705
  19. LIPITOR [Suspect]
     Active Substance: ATORVASTATIN CALCIUM
     Dosage: 10 MG, DAILY
     Route: 048
     Dates: end: 2007
  20. DEPAKENE [Concomitant]
     Active Substance: VALPROIC ACID

REACTIONS (7)
  - Cardio-respiratory arrest [Recovered/Resolved]
  - Vomiting [Recovered/Resolved]
  - Loss of consciousness [Recovered/Resolved]
  - Blood pressure decreased [Recovered/Resolved]
  - Rhabdomyolysis [Recovered/Resolved]
  - Anaphylactic shock [Recovered/Resolved]
  - Sneezing [Unknown]

NARRATIVE: CASE EVENT DATE: 200612
